FAERS Safety Report 17149293 (Version 1)
Quarter: 2019Q4

REPORT INFORMATION
  Report Type: Spontaneous
  Country: SE (occurrence: SE)
  Receive Date: 20191213
  Receipt Date: 20191213
  Transmission Date: 20200122
  Serious: Yes (Hospitalization)
  Sender: FDA-Public Use
  Company Number: SE-ACCORD-165323

PATIENT
  Age: 17 Year

DRUGS (3)
  1. ESCITALOPRAM [Suspect]
     Active Substance: ESCITALOPRAM OXALATE
     Dosage: UNCLEAR QUANTITIES THE DOSAGE IS EMPTY
     Route: 048
     Dates: start: 20181217, end: 20181217
  2. PROPAVAN [Suspect]
     Active Substance: PROPIOMAZINE
     Dosage: IN THE ALARM IS 13 PROPAVAN UNCLEAR QUANTITIES DOSAGE IS EMPTY
     Route: 048
     Dates: start: 20181217, end: 20181217
  3. ALIMEMAZINE [Suspect]
     Active Substance: TRIMEPRAZINE
     Dosage: UNCLEAR QUANTITIES THE DOSAGE IS EMPTY
     Route: 048
     Dates: start: 20181217, end: 20181217

REACTIONS (4)
  - Intentional self-injury [Unknown]
  - Intentional overdose [Unknown]
  - Unresponsive to stimuli [Unknown]
  - Somnolence [Unknown]

NARRATIVE: CASE EVENT DATE: 20181217
